FAERS Safety Report 15627810 (Version 2)
Quarter: 2019Q2

REPORT INFORMATION
  Report Type: Spontaneous
  Country: US (occurrence: US)
  Receive Date: 20181116
  Receipt Date: 20190422
  Transmission Date: 20190711
  Serious: Yes (Other)
  Sender: FDA-Public Use
  Company Number: US-ASTRAZENECA-2018SF48843

PATIENT
  Age: 16112 Day
  Sex: Male
  Weight: 90.7 kg

DRUGS (12)
  1. PROTONIX [Suspect]
     Active Substance: PANTOPRAZOLE SODIUM
     Route: 065
     Dates: start: 200605, end: 200801
  2. CELLCEPT [Concomitant]
     Active Substance: MYCOPHENOLATE MOFETIL\MYCOPHENOLATE MOFETIL HYDROCHLORIDE
     Dates: start: 200605, end: 200811
  3. FUROSEMIDE. [Concomitant]
     Active Substance: FUROSEMIDE
     Dates: start: 200605, end: 200703
  4. PEPCID [Concomitant]
     Active Substance: FAMOTIDINE
  5. OMEPRAZOLE. [Suspect]
     Active Substance: OMEPRAZOLE
     Route: 065
     Dates: start: 201107, end: 201204
  6. PROTONIX [Suspect]
     Active Substance: PANTOPRAZOLE SODIUM
     Route: 065
     Dates: start: 2006, end: 2011
  7. ASPIRIN. [Concomitant]
     Active Substance: ASPIRIN
  8. CALCITRIOL. [Concomitant]
     Active Substance: CALCITRIOL
     Dates: start: 200605, end: 201507
  9. PREDNISONE. [Concomitant]
     Active Substance: PREDNISONE
     Dates: start: 200605, end: 201204
  10. PROGRAF [Concomitant]
     Active Substance: TACROLIMUS\TACROLIMUS ANHYDROUS
     Dates: start: 200605, end: 200908
  11. NEXIUM [Suspect]
     Active Substance: ESOMEPRAZOLE MAGNESIUM
     Route: 048
     Dates: start: 2006, end: 2011
  12. NEXIUM [Suspect]
     Active Substance: ESOMEPRAZOLE MAGNESIUM
     Route: 048
     Dates: start: 200804, end: 201106

REACTIONS (2)
  - Chronic kidney disease [Unknown]
  - End stage renal disease [Not Recovered/Not Resolved]

NARRATIVE: CASE EVENT DATE: 20120704
